FAERS Safety Report 11764242 (Version 1)
Quarter: 2015Q4

REPORT INFORMATION
  Report Type: Spontaneous
  Country: US (occurrence: US)
  Receive Date: 20151120
  Receipt Date: 20151120
  Transmission Date: 20160304
  Serious: No
  Sender: FDA-Public Use
  Company Number: US-ELI_LILLY_AND_COMPANY-US201305003821

PATIENT
  Sex: Female

DRUGS (1)
  1. FORTEO [Suspect]
     Active Substance: TERIPARATIDE
     Indication: HIP FRACTURE
     Dosage: UNK, QD

REACTIONS (3)
  - Somnolence [Recovered/Resolved]
  - Speech disorder [Recovered/Resolved]
  - Headache [Recovered/Resolved]
